FAERS Safety Report 14674808 (Version 1)
Quarter: 2018Q1

REPORT INFORMATION
  Report Type: Spontaneous
  Country: US (occurrence: US)
  Receive Date: 20180323
  Receipt Date: 20180323
  Transmission Date: 20180509
  Serious: Yes (Other)
  Sender: FDA-Public Use
  Company Number: None

PATIENT
  Age: 22 Year
  Sex: Female
  Weight: 65.25 kg

DRUGS (4)
  1. ALBUTEROL INHALER [Concomitant]
     Active Substance: ALBUTEROL
  2. VITAFUSION MULTIVITES GUMMY VITAMIN (NATURAL BERRY, PEACH AND ORANGE FLAVOR) [Concomitant]
  3. LEVORA [Suspect]
     Active Substance: ETHINYL ESTRADIOL\LEVONORGESTREL
     Indication: CONTRACEPTION
     Dosage: ?          QUANTITY:28 TABLET(S);?
     Route: 048
     Dates: start: 20180228, end: 20180320
  4. LEVORAL [Concomitant]

REACTIONS (4)
  - Breast pain [None]
  - Product packaging issue [None]
  - Breast tenderness [None]
  - Accidental overdose [None]

NARRATIVE: CASE EVENT DATE: 20180301
